FAERS Safety Report 8455785-4 (Version None)
Quarter: 2012Q2

REPORT INFORMATION
  Report Type: 
  Country: None (occurrence: None)
  Receive Date: 20120621
  Receipt Date: 20120618
  Transmission Date: 20120825
  Serious: Yes (Hospitalization)
  Sender: FDA-Public Use
  Company Number: US-GILEAD-2012-0055751

PATIENT
  Sex: Male

DRUGS (2)
  1. LETAIRIS [Suspect]
     Indication: PRODUCT USED FOR UNKNOWN INDICATION
     Dosage: 5 MG, UNK
     Route: 048
     Dates: start: 20110916
  2. LETAIRIS [Suspect]
     Dosage: 7.5 MG, UNK
     Route: 048
     Dates: start: 20110822, end: 20110916

REACTIONS (1)
  - AORTIC VALVE REPLACEMENT [None]
